FAERS Safety Report 17797447 (Version 7)
Quarter: 2021Q4

REPORT INFORMATION
  Report Type: Spontaneous
  Country: US (occurrence: US)
  Receive Date: 20200518
  Receipt Date: 20211213
  Transmission Date: 20220304
  Serious: Yes (Hospitalization)
  Sender: FDA-Public Use
  Company Number: US-SA-2020SA124514

PATIENT
  Age: 39 Year
  Sex: Female
  Weight: 97 kg

DRUGS (60)
  1. DUPIXENT [Suspect]
     Active Substance: DUPILUMAB
     Indication: Asthma
     Dosage: 600 MG, 1X
     Route: 058
     Dates: start: 20200501, end: 20200501
  2. DUPIXENT [Suspect]
     Active Substance: DUPILUMAB
     Indication: Illness
     Dosage: 300 MG, QOW
     Route: 058
     Dates: start: 20200521
  3. BENADRYL [Concomitant]
     Active Substance: DIPHENHYDRAMINE HYDROCHLORIDE
     Indication: Hypersensitivity
     Dosage: 1 DF, FREQUENCY: BEDTIME, PR
     Route: 048
  4. CYCLOBENZAPRINE [Concomitant]
     Active Substance: CYCLOBENZAPRINE
     Indication: Arthralgia
     Dosage: 1 DF; FREQUENCY: BEDTIME AS NEEDED
     Route: 048
  5. PREDNISONE [Concomitant]
     Active Substance: PREDNISONE
     Dosage: 10 MG, QD
     Route: 048
  6. PREDNISONE [Concomitant]
     Active Substance: PREDNISONE
     Dosage: UNK, TAPER AS DIRECTED
     Route: 048
  7. PREDNISONE [Concomitant]
     Active Substance: PREDNISONE
     Dosage: 3 DF, QD
     Route: 048
  8. PREDNISONE [Concomitant]
     Active Substance: PREDNISONE
     Dosage: 40 MG, QD
     Route: 048
  9. CETIRIZINE HYDROCHLORIDE [Concomitant]
     Active Substance: CETIRIZINE HYDROCHLORIDE
     Dosage: UNK
  10. PANTOPRAZOLE [Concomitant]
     Active Substance: PANTOPRAZOLE
     Dosage: 1 DF, QD
     Route: 048
  11. PANTOPRAZOLE [Concomitant]
     Active Substance: PANTOPRAZOLE
     Dosage: 2 DF, QD
     Route: 048
  12. LOVENOX [Concomitant]
     Active Substance: ENOXAPARIN SODIUM
     Dosage: 1 ML, QD
     Route: 058
  13. CEFDINIR [Concomitant]
     Active Substance: CEFDINIR
     Dosage: 6 ML, BID
     Route: 048
  14. BUDESONIDE [Concomitant]
     Active Substance: BUDESONIDE
     Dosage: 2 ML, BID
     Route: 065
  15. CEFDINIR [Concomitant]
     Active Substance: CEFDINIR
     Dosage: 1 DF, Q12H
     Route: 048
  16. PROCHLORPERAZINE [Concomitant]
     Active Substance: PROCHLORPERAZINE
     Indication: Nausea
     Dosage: 1 DF, BID, PRN
     Route: 048
  17. PROCHLORPERAZINE [Concomitant]
     Active Substance: PROCHLORPERAZINE
     Indication: Vomiting
  18. LEVOTHYROXINE [Concomitant]
     Active Substance: LEVOTHYROXINE
     Dosage: 1 DF, QD
     Route: 048
  19. TIZANIDINE [Concomitant]
     Active Substance: TIZANIDINE
     Dosage: 1 DF; FRWQUENCY AT BEDTIME AS NEEEDED
     Route: 048
  20. TIROSINT [Concomitant]
     Active Substance: LEVOTHYROXINE SODIUM
     Dosage: 4 DF, QD
     Route: 048
  21. TIROSINT [Concomitant]
     Active Substance: LEVOTHYROXINE SODIUM
     Dosage: 1 DF, QD
     Route: 048
  22. HUMALOG [Concomitant]
     Active Substance: INSULIN LISPRO
     Dosage: 4 U
     Route: 058
  23. HUMALOG [Concomitant]
     Active Substance: INSULIN LISPRO
     Dosage: UNK, TID;TDD 30 UNITS
  24. TRESIBA [Concomitant]
     Active Substance: INSULIN DEGLUDEC
     Dosage: 200 U, QD
     Route: 058
  25. TRESIBA [Concomitant]
     Active Substance: INSULIN DEGLUDEC
     Dosage: 160 U, QD
     Route: 058
  26. WARFARIN [Concomitant]
     Active Substance: WARFARIN
     Dosage: 1 DF; FREQUENCY: ON SUNDAY, TUESDAY
     Route: 048
  27. WARFARIN [Concomitant]
     Active Substance: WARFARIN
     Dosage: 3 MG; FREQUENCY: ALL OTHER DAYS
     Route: 048
  28. ADVAIR HFA [Concomitant]
     Active Substance: FLUTICASONE PROPIONATE\SALMETEROL XINAFOATE
     Dosage: 1 DF, BID
     Route: 055
  29. ZITHROMAX [Concomitant]
     Active Substance: AZITHROMYCIN DIHYDRATE
     Dosage: UNK
     Route: 065
  30. DIFLUCAN [Concomitant]
     Active Substance: FLUCONAZOLE
     Dosage: 1 DF, QD
     Route: 048
  31. HUMULIN R [Concomitant]
     Active Substance: INSULIN HUMAN
     Dosage: UNK, SLIDING SCLAE UPTO 600 UNITS/DAILY
     Route: 058
  32. AZELASTINE [Concomitant]
     Active Substance: AZELASTINE
     Dosage: 2 DF, BID
     Route: 045
  33. ROSUVASTATIN [Concomitant]
     Active Substance: ROSUVASTATIN
     Dosage: 1 DF, QD
     Route: 048
  34. BENADRYL [Concomitant]
     Active Substance: DIPHENHYDRAMINE HYDROCHLORIDE
     Dosage: UNK
     Route: 048
  35. ALBUTEROL SULFATE [Concomitant]
     Active Substance: ALBUTEROL SULFATE
     Indication: Dyspnoea
     Dosage: 3 ML, TID
     Route: 065
  36. ALBUTEROL SULFATE [Concomitant]
     Active Substance: ALBUTEROL SULFATE
     Indication: Asthma
     Dosage: 3 ML FREQUENCY: Q2H, PRN
     Route: 055
  37. FLUTICASONE [Concomitant]
     Active Substance: FLUTICASONE
     Dosage: 1 DF, BID
     Route: 045
  38. AZITHROMYCIN [Concomitant]
     Active Substance: AZITHROMYCIN
     Dosage: 1 DF, QD
     Route: 048
  39. NYSTATIN [Concomitant]
     Active Substance: NYSTATIN
     Dosage: UNK, BID, 1 APPLICATION
     Route: 061
  40. DUONEB [Concomitant]
     Active Substance: ALBUTEROL SULFATE\IPRATROPIUM BROMIDE
     Dosage: 3 ML, QID
     Route: 055
  41. CETIRIZINE [Concomitant]
     Active Substance: CETIRIZINE HYDROCHLORIDE
     Dosage: 1 DF, QD
     Route: 048
  42. HYDROCORTISONE [Concomitant]
     Active Substance: HYDROCORTISONE
     Dosage: UNK, TID, 1 APPLICATION
     Route: 061
  43. TYLENOL WITH CODEINE [Concomitant]
     Active Substance: ACETAMINOPHEN\CODEINE PHOSPHATE
     Indication: Cough
     Dosage: 1 DF, FREQUENCY QID, PRN
     Route: 048
  44. FARXIGA [Concomitant]
     Active Substance: DAPAGLIFLOZIN PROPANEDIOL
     Dosage: 1 DF, QD
     Route: 048
  45. OZEMPIC [Concomitant]
     Active Substance: SEMAGLUTIDE
     Dosage: 1 MG, QW, EVERY TUESDAY
     Route: 058
  46. MUCINEX [Concomitant]
     Active Substance: GUAIFENESIN
     Dosage: 1 DF, Q12H
     Route: 048
  47. MAGNESIUM OXIDE [Concomitant]
     Active Substance: MAGNESIUM OXIDE
     Dosage: 1 DF, BID
     Route: 048
  48. LASIX [Concomitant]
     Active Substance: FUROSEMIDE
     Dosage: 1 DF, QD
     Route: 048
  49. MEDROXYPROGESTERONE [Concomitant]
     Active Substance: MEDROXYPROGESTERONE
     Dosage: 1 DF, QD
     Route: 048
  50. ERGOCALCIFEROL [Concomitant]
     Active Substance: ERGOCALCIFEROL
     Dosage: 1 DF
     Route: 048
  51. METFORMIN [Concomitant]
     Active Substance: METFORMIN HYDROCHLORIDE
     Dosage: 1000 MG, BID
     Route: 048
  52. SINGULAIR [Concomitant]
     Active Substance: MONTELUKAST SODIUM
     Dosage: 1 DF, HS
     Route: 048
  53. PROAIR HFA [Concomitant]
     Active Substance: ALBUTEROL SULFATE
     Indication: Wheezing
     Dosage: 2 DF, FREQUENCY:Q4H PRN
     Route: 055
  54. WARFARIN [Concomitant]
     Active Substance: WARFARIN
     Dosage: 1 DF, QW; EVERY THURSDAY, SATURDAY
     Route: 048
  55. WARFARIN [Concomitant]
     Active Substance: WARFARIN
     Dosage: 2 DF; EVERY TUESDAY, SUNDAY
     Route: 048
  56. WARFARIN [Concomitant]
     Active Substance: WARFARIN
     Dosage: 3 MG,3 MG; FREQUENCY: ALL OTHER DAYS
     Route: 048
  57. PREDNISONE [Concomitant]
     Active Substance: PREDNISONE
     Indication: Asthma
     Dosage: 4 DF, QD
     Route: 048
  58. PREDNISONE [Concomitant]
     Active Substance: PREDNISONE
     Dosage: 5 MG, Q5D
     Route: 048
  59. PREDNISONE [Concomitant]
     Active Substance: PREDNISONE
     Dosage: 5 DF, QD
     Route: 048
  60. VITAMINS NOS [Concomitant]
     Active Substance: VITAMINS
     Dosage: 1 DF, BID

REACTIONS (9)
  - Dyspnoea [Unknown]
  - Respiratory disorder [Unknown]
  - Dizziness [Unknown]
  - Vomiting [Recovered/Resolved]
  - Hyperglycaemia [Unknown]
  - Nausea [Recovered/Resolved]
  - Exposure to SARS-CoV-2 [Unknown]
  - Asthma [Unknown]
  - Product use in unapproved indication [Unknown]

NARRATIVE: CASE EVENT DATE: 20200101
